FAERS Safety Report 7623031-7 (Version None)
Quarter: 2011Q3

REPORT INFORMATION
  Report Type: 
  Country: None (occurrence: None)
  Receive Date: 20110720
  Receipt Date: 20110714
  Transmission Date: 20111222
  Serious: Yes (Hospitalization)
  Sender: FDA-Public Use
  Company Number: US-GILEAD-2011-0040985

PATIENT
  Sex: Female

DRUGS (5)
  1. LETAIRIS [Suspect]
     Indication: COLLAGEN-VASCULAR DISEASE
  2. LETAIRIS [Suspect]
     Indication: PULMONARY HYPERTENSION
     Route: 048
     Dates: start: 20070914
  3. LETAIRIS [Suspect]
     Indication: BLOOD PRESSURE INCREASED
  4. LETAIRIS [Suspect]
     Indication: SLEEP APNOEA SYNDROME
  5. PREDNISONE [Concomitant]

REACTIONS (4)
  - POST PROCEDURAL INFECTION [None]
  - IMMUNODEFICIENCY [None]
  - BLOOD TEST ABNORMAL [None]
  - SEPSIS [None]
